FAERS Safety Report 15046511 (Version 1)
Quarter: 2018Q2

REPORT INFORMATION
  Report Type: Spontaneous
  Country: DE (occurrence: DE)
  Receive Date: 20180621
  Receipt Date: 20180621
  Transmission Date: 20180711
  Serious: Yes (Hospitalization)
  Sender: FDA-Public Use
  Company Number: DE-TEVA-2018-DE-908666

PATIENT
  Age: 85 Year
  Sex: Male
  Weight: 61 kg

DRUGS (10)
  1. DIGITOXIN [Concomitant]
     Active Substance: DIGITOXIN
     Dosage: 0.1 MG, SCHEMA, TABLETTEN
     Route: 048
  2. ZOLPIDEM [Concomitant]
     Active Substance: ZOLPIDEM\ZOLPIDEM TARTRATE
     Dosage: 1 DOSAGE FORMS DAILY; 10 MG, 0-0-0-1, TABLETTEN
     Route: 048
  3. FUROSEMIDE. [Suspect]
     Active Substance: FUROSEMIDE
     Dosage: 3 DOSAGE FORMS DAILY; 125 MG, 1-1-1-0, TABLETTEN
     Route: 048
  4. OMEPRAZOL [Concomitant]
     Active Substance: OMEPRAZOLE
     Dosage: 2 DOSAGE FORMS DAILY; 40 MG, 1-0-1-0, TABLETTEN
     Route: 048
  5. RAMIPRIL. [Concomitant]
     Active Substance: RAMIPRIL
     Dosage: 1 DOSAGE FORMS DAILY; 2.5 MG, 1-0-0-0, TABLETTEN
     Route: 048
  6. EPLERENON [Suspect]
     Active Substance: EPLERENONE
     Dosage: 25 MG, SCHEMA, TABLETTEN
     Route: 048
  7. ALLOPURINOL. [Concomitant]
     Active Substance: ALLOPURINOL
     Dosage: 1 DOSAGE FORMS DAILY; 100 MG, 1-0-0-0, TABLETTEN
     Route: 048
  8. METOPROLOL. [Concomitant]
     Active Substance: METOPROLOL
     Dosage: 95 MG, 1-0-0.5-0, TABLETTEN
     Route: 048
  9. MARCUMAR [Concomitant]
     Active Substance: PHENPROCOUMON
     Dosage: NACH INR, TABLETTEN
     Route: 048
  10. DUODART 0,5MG/0,4MG [Concomitant]
     Dosage: 0.5|0.4 MG, 1-0-0-0, KAPSELN
     Route: 048

REACTIONS (7)
  - Nocturia [Unknown]
  - Dyspnoea [Unknown]
  - Oedema peripheral [Unknown]
  - Ascites [Unknown]
  - Hypertension [Unknown]
  - Medication monitoring error [Unknown]
  - Cardiac failure [Unknown]
